FAERS Safety Report 5490636-1 (Version None)
Quarter: 2007Q4

REPORT INFORMATION
  Report Type: 
  Country: None (occurrence: None)
  Receive Date: 20071019
  Receipt Date: 20071012
  Transmission Date: 20080405
  Serious: Yes (Other)
  Sender: FDA-Public Use
  Company Number: CA-ASTRAZENECA-2007UW23937

PATIENT
  Age: 65 Year
  Sex: Male

DRUGS (8)
  1. CRESTOR [Suspect]
     Route: 048
  2. LIPITOR [Suspect]
  3. AVAPRO [Concomitant]
     Route: 048
  4. PERINDOPRIL ERBUMINE [Concomitant]
  5. LOSEC [Concomitant]
     Route: 048
  6. VITAMIN CAP [Concomitant]
  7. NORVASC [Concomitant]
  8. WARFARIN SODIUM [Concomitant]

REACTIONS (8)
  - ALANINE AMINOTRANSFERASE INCREASED [None]
  - BACK PAIN [None]
  - BLOOD CREATINE PHOSPHOKINASE INCREASED [None]
  - FALL [None]
  - GAIT DISTURBANCE [None]
  - HYPERTONIA [None]
  - MUSCULAR WEAKNESS [None]
  - MYALGIA [None]
